FAERS Safety Report 10084617 (Version 1)
Quarter: 2014Q2

REPORT INFORMATION
  Report Type: Spontaneous
  Country: CR (occurrence: CR)
  Receive Date: 20140417
  Receipt Date: 20140417
  Transmission Date: 20141212
  Serious: Yes (Other)
  Sender: FDA-Public Use
  Company Number: CR-PFIZER INC-2014105318

PATIENT
  Sex: 0

DRUGS (2)
  1. PANTECTA [Suspect]
     Dosage: UNK
  2. WARFARIN [Interacting]
     Dosage: UNK

REACTIONS (3)
  - Drug interaction [Unknown]
  - International normalised ratio increased [Unknown]
  - Blood pressure increased [Unknown]
